FAERS Safety Report 23749111 (Version 1)
Quarter: 2024Q2

REPORT INFORMATION
  Report Type: Spontaneous
  Country: US (occurrence: None)
  Receive Date: 20240416
  Receipt Date: 20240416
  Transmission Date: 20240716
  Serious: Yes (Disabling)
  Sender: FDA-Public Use
  Company Number: None

PATIENT
  Age: 72 Year
  Sex: Male
  Weight: 81 kg

DRUGS (4)
  1. BUPROPION [Suspect]
     Active Substance: BUPROPION
     Indication: Major depression
     Dosage: 1 TABLET DAILY ORAL?
     Route: 048
     Dates: start: 20210415, end: 20240415
  2. BUPROPION [Suspect]
     Active Substance: BUPROPION
     Indication: Anxiety
  3. Trazadone 100mg 1/day at night [Concomitant]
  4. Multi vitamin daily [Concomitant]

REACTIONS (4)
  - Decreased appetite [None]
  - Memory impairment [None]
  - Memory impairment [None]
  - Withdrawal syndrome [None]
